FAERS Safety Report 19742426 (Version 1)
Quarter: 2021Q3

REPORT INFORMATION
  Report Type: Spontaneous
  Country: CN (occurrence: CN)
  Receive Date: 20210824
  Receipt Date: 20210824
  Transmission Date: 20211014
  Serious: Yes (Life-Threatening, Hospitalization)
  Sender: FDA-Public Use
  Company Number: CN-EISAI MEDICAL RESEARCH-EC-2021-098390

PATIENT
  Age: 58 Year
  Sex: Female

DRUGS (1)
  1. LENVIMA [Suspect]
     Active Substance: LENVATINIB
     Indication: GALLBLADDER CANCER
     Route: 048
     Dates: start: 20210729, end: 20210801

REACTIONS (4)
  - Pruritus [Recovering/Resolving]
  - Erythema [Recovering/Resolving]
  - Papule [Recovering/Resolving]
  - Rash vesicular [Recovering/Resolving]

NARRATIVE: CASE EVENT DATE: 20210801
